APPROVED DRUG PRODUCT: EPRONTIA
Active Ingredient: TOPIRAMATE
Strength: 25MG/ML
Dosage Form/Route: SOLUTION;ORAL
Application: N214679 | Product #001 | TE Code: AB
Applicant: AZURITY PHARMACEUTICALS INC
Approved: Nov 5, 2021 | RLD: Yes | RS: Yes | Type: RX

PATENTS:
Patent 11433046 | Expires: Aug 21, 2040
Patent 11433046 | Expires: Aug 21, 2040
Patent 11433046 | Expires: Aug 21, 2040
Patent 12290503 | Expires: Aug 21, 2040
Patent 12290503 | Expires: Aug 21, 2040
Patent 12290503 | Expires: Aug 21, 2040
Patent 11911362 | Expires: Aug 21, 2040
Patent 11911362 | Expires: Aug 21, 2040
Patent 11911362 | Expires: Aug 21, 2040
Patent 11826343 | Expires: Aug 21, 2040
Patent 11633374 | Expires: Aug 21, 2040